FAERS Safety Report 8386294-9 (Version None)
Quarter: 2012Q2

REPORT INFORMATION
  Report Type: 
  Country: None (occurrence: None)
  Receive Date: 20120525
  Receipt Date: 20120515
  Transmission Date: 20120825
  Serious: Yes (Other)
  Sender: FDA-Public Use
  Company Number: MX-SANOFI-AVENTIS-2012SA034409

PATIENT
  Age: 63 Year
  Sex: Female
  Weight: 70 kg

DRUGS (8)
  1. ARAVA [Suspect]
     Indication: RHEUMATOID ARTHRITIS
     Route: 048
     Dates: start: 20110501, end: 20111201
  2. TOFRANIL [Concomitant]
     Indication: DEPRESSION
     Route: 048
  3. METHOTREXATE [Concomitant]
     Indication: RHEUMATOID ARTHRITIS
     Route: 048
     Dates: start: 20020101
  4. CALCIUM [Concomitant]
     Route: 048
  5. ARAVA [Suspect]
     Dosage: FREQ.:EVERY 15 DAYS
     Route: 048
     Dates: start: 20111201
  6. CLONAZEPAM [Concomitant]
     Indication: DEPRESSION
     Dosage: DOSE: 1/4
     Route: 048
  7. NORVASC [Concomitant]
     Route: 048
     Dates: start: 20070101
  8. FOLIC ACID [Concomitant]
     Route: 048

REACTIONS (3)
  - ANKLE FRACTURE [None]
  - INAPPROPRIATE SCHEDULE OF DRUG ADMINISTRATION [None]
  - FALL [None]
